FAERS Safety Report 8136068-9 (Version None)
Quarter: 2012Q1

REPORT INFORMATION
  Report Type: 
  Country: None (occurrence: None)
  Receive Date: 20120214
  Receipt Date: 20120203
  Transmission Date: 20120608
  Serious: Yes (Hospitalization)
  Sender: FDA-Public Use
  Company Number: CA-JNJFOC-20120203178

PATIENT
  Sex: Female
  Weight: 51.5 kg

DRUGS (8)
  1. REMICADE [Suspect]
     Indication: CROHN'S DISEASE
     Dosage: SECOND DOSE
     Route: 042
     Dates: start: 20120203
  2. ACETAMINOPHEN [Concomitant]
     Indication: PREMEDICATION
     Route: 048
  3. ACETAMINOPHEN [Concomitant]
     Route: 048
  4. DIMENHYDRINATE [Concomitant]
     Route: 042
  5. SOLU-MEDROL [Concomitant]
     Indication: PREMEDICATION
     Route: 042
  6. BENADRYL [Concomitant]
     Indication: PREMEDICATION
     Dosage: 2 DOSES
     Route: 042
  7. REMICADE [Suspect]
     Route: 042
     Dates: start: 20120118
  8. SODIUM CHLORIDE [Concomitant]
     Dosage: 750 CC DURING INFUSION
     Route: 065

REACTIONS (12)
  - URTICARIA [None]
  - ABDOMINAL PAIN UPPER [None]
  - CHEST DISCOMFORT [None]
  - BLOOD PRESSURE DECREASED [None]
  - RASH [None]
  - MALAISE [None]
  - VOMITING [None]
  - FLUSHING [None]
  - NAUSEA [None]
  - ARTHRALGIA [None]
  - INFUSION RELATED REACTION [None]
  - DIZZINESS [None]
